FAERS Safety Report 7630279-4 (Version None)
Quarter: 2011Q3

REPORT INFORMATION
  Report Type: 
  Country: None (occurrence: None)
  Receive Date: 20110722
  Receipt Date: 20110709
  Transmission Date: 20111222
  Serious: Yes (Other)
  Sender: FDA-Public Use
  Company Number: PHHY2011US65363

PATIENT
  Age: 57 Year
  Sex: Male

DRUGS (6)
  1. AMANTADINE HCL [Suspect]
     Indication: PARKINSON'S DISEASE
     Dosage: UNK UKN, UNK
  2. LEVODOPA [Suspect]
     Indication: PARKINSON'S DISEASE
     Dosage: MORE THAN 2500 MG
  3. ENTACAPONE [Suspect]
     Indication: PARKINSON'S DISEASE
     Dosage: UNK UKN, UNK
  4. LEVODOPA [Suspect]
     Dosage: 2000 MG, UNK
  5. LEVODOPA [Suspect]
     Dosage: 500 MG, UNK
  6. LEVODOPA [Suspect]
     Dosage: 800 MG, UNK

REACTIONS (4)
  - EMOTIONAL DISTRESS [None]
  - AGITATION [None]
  - DEMENTIA [None]
  - HYPERSEXUALITY [None]
